FAERS Safety Report 16607598 (Version 1)
Quarter: 2019Q3

REPORT INFORMATION
  Report Type: Spontaneous
  Country: FR (occurrence: FR)
  Receive Date: 20190722
  Receipt Date: 20190722
  Transmission Date: 20191004
  Serious: Yes (Hospitalization)
  Sender: FDA-Public Use
  Company Number: FR-SA-2019SA189575

PATIENT
  Age: 81 Year
  Sex: Male
  Weight: 86.4 kg

DRUGS (10)
  1. KARDEGIC [Concomitant]
     Active Substance: ASPIRIN DL-LYSINE
     Indication: VENTRICULAR ARRHYTHMIA
     Dosage: 75 MG, QD, 1-0-0
     Route: 048
     Dates: start: 2001
  2. RYTHMODAN [DISOPYRAMIDE PHOSPHATE] [Concomitant]
     Active Substance: DISOPYRAMIDE PHOSPHATE
     Indication: VENTRICULAR ARRHYTHMIA
     Dosage: 125 MG, QD, 1-2-0-0
     Route: 048
     Dates: start: 2001
  3. ATROVENT [Concomitant]
     Active Substance: IPRATROPIUM BROMIDE
     Indication: CHRONIC OBSTRUCTIVE PULMONARY DISEASE
     Dosage: 60 UG, QD, 1-1-1
     Route: 055
  4. LINEZOLID. [Suspect]
     Active Substance: LINEZOLID
     Indication: DEVICE RELATED INFECTION
     Dosage: 1200 MG, QD, 1-0-1
     Route: 048
     Dates: start: 20190419, end: 20190519
  5. TOPALGIC (TRAMADOL HYDROCHLORIDE) [Suspect]
     Active Substance: TRAMADOL HYDROCHLORIDE
     Indication: PAIN
     Dosage: 150 MG, QD, 1-1-1
     Route: 048
     Dates: start: 20190507, end: 20190517
  6. DOLIPRANE [Concomitant]
     Active Substance: ACETAMINOPHEN
     Indication: PAIN
     Dosage: 1000 MG, QD, 1-0-1
     Route: 048
  7. LOVENOX [Suspect]
     Active Substance: ENOXAPARIN SODIUM
     Indication: THROMBOSIS PROPHYLAXIS
     Dosage: 4000 IU, QD, 0-1-0
     Route: 057
     Dates: start: 20190411, end: 20190517
  8. BRICANYL [Concomitant]
     Active Substance: TERBUTALINE SULFATE
     Indication: CHRONIC OBSTRUCTIVE PULMONARY DISEASE
     Dosage: 1500 UG, QD, 1-1-1
     Route: 055
  9. ULTIBRO BREEZHALER [Concomitant]
     Active Substance: GLYCOPYRRONIUM\INDACATEROL
     Indication: CHRONIC OBSTRUCTIVE PULMONARY DISEASE
     Dosage: 1 DF, QD, 0-0-1
     Route: 055
  10. VENTOLINE [SALBUTAMOL SULFATE] [Concomitant]
     Active Substance: ALBUTEROL SULFATE
     Indication: CHRONIC OBSTRUCTIVE PULMONARY DISEASE
     Dosage: UNK UNK, PRN, IF NEED
     Route: 055

REACTIONS (2)
  - Thrombocytopenia [Recovered/Resolved]
  - Neutropenia [Recovered/Resolved]

NARRATIVE: CASE EVENT DATE: 20190514
